FAERS Safety Report 6551390-5 (Version None)
Quarter: 2010Q1

REPORT INFORMATION
  Report Type: 
  Country: None (occurrence: None)
  Receive Date: 20100126
  Receipt Date: 20100119
  Transmission Date: 20100710
  Serious: Yes (Hospitalization)
  Sender: FDA-Public Use
  Company Number: DE-ROCHE-663530

PATIENT
  Sex: Female
  Weight: 89 kg

DRUGS (1)
  1. XENICAL [Suspect]
     Indication: WEIGHT CONTROL
     Dosage: 1-1-0
     Route: 048
     Dates: start: 20090820, end: 20090928

REACTIONS (1)
  - SIGMOIDITIS [None]
